FAERS Safety Report 16400233 (Version 1)
Quarter: 2019Q2

REPORT INFORMATION
  Report Type: Spontaneous
  Country: US (occurrence: US)
  Receive Date: 20190606
  Receipt Date: 20190606
  Transmission Date: 20190711
  Serious: No
  Sender: FDA-Public Use
  Company Number: US-ALLERGAN-1839164US

PATIENT
  Sex: Male

DRUGS (1)
  1. KYBELLA [Suspect]
     Active Substance: DEOXYCHOLIC ACID
     Indication: FAT TISSUE INCREASED
     Dosage: 4 ML, SINGLE (2 VIALS)
     Route: 058
     Dates: start: 20180719, end: 20180719

REACTIONS (4)
  - Injection site hypoaesthesia [Recovering/Resolving]
  - Injection site ulcer [Recovering/Resolving]
  - Abscess [Recovering/Resolving]
  - Propionibacterium infection [Recovering/Resolving]
